FAERS Safety Report 7483522-9 (Version None)
Quarter: 2011Q2

REPORT INFORMATION
  Report Type: 
  Country: None (occurrence: None)
  Receive Date: 20110517
  Receipt Date: 20110502
  Transmission Date: 20111010
  Serious: No
  Sender: FDA-Public Use
  Company Number: US-TYCO HEALTHCARE/MALLINCKRODT-T201100917

PATIENT
  Age: 46 Year
  Sex: Male

DRUGS (2)
  1. OXCARBAZEPINE [Concomitant]
  2. EXALGO [Suspect]
     Indication: MYALGIA
     Dosage: FIVE 16MG TABS IN THE AM
     Route: 048

REACTIONS (3)
  - AGITATION [None]
  - INAPPROPRIATE SCHEDULE OF DRUG ADMINISTRATION [None]
  - MEDICATION ERROR [None]
